FAERS Safety Report 13958456 (Version 1)
Quarter: 2017Q3

REPORT INFORMATION
  Report Type: Spontaneous
  Country: US (occurrence: None)
  Receive Date: 20170911
  Receipt Date: 20170911
  Transmission Date: 20171128
  Serious: Yes (Hospitalization)
  Sender: FDA-Public Use
  Company Number: None

PATIENT
  Age: 74 Year
  Sex: Male

DRUGS (16)
  1. LOSARTAN. [Concomitant]
     Active Substance: LOSARTAN
  2. RANEXA [Concomitant]
     Active Substance: RANOLAZINE
  3. ECOTRIN [Concomitant]
     Active Substance: ASPIRIN
  4. VIT. D [Concomitant]
  5. PRILOSEC [Concomitant]
     Active Substance: OMEPRAZOLE MAGNESIUM
  6. METOPROLOL TARTRATE. [Concomitant]
     Active Substance: METOPROLOL TARTRATE
  7. BOTOX [Suspect]
     Active Substance: ONABOTULINUMTOXINA
     Indication: MIGRAINE
     Route: 030
     Dates: start: 20150227
  8. TRICOR [Concomitant]
     Active Substance: FENOFIBRATE
  9. BOTOX [Concomitant]
     Active Substance: ONABOTULINUMTOXINA
  10. TRAZODONE [Concomitant]
     Active Substance: TRAZODONE HYDROCHLORIDE
  11. IRON [Concomitant]
     Active Substance: IRON
  12. COUMADIN [Concomitant]
     Active Substance: WARFARIN SODIUM
  13. CYANOCOBALAM [Concomitant]
  14. DEPAKOTE [Concomitant]
     Active Substance: DIVALPROEX SODIUM
  15. LIPITOR [Concomitant]
     Active Substance: ATORVASTATIN CALCIUM
  16. FOLIC ACID. [Concomitant]
     Active Substance: FOLIC ACID

REACTIONS (1)
  - Hospitalisation [None]

NARRATIVE: CASE EVENT DATE: 20170905
